FAERS Safety Report 4743370-7 (Version None)
Quarter: 2005Q3

REPORT INFORMATION
  Report Type: 
  Country: None (occurrence: None)
  Receive Date: 20050809
  Receipt Date: 20050727
  Transmission Date: 20060218
  Serious: Yes (Other)
  Sender: FDA-Public Use
  Company Number: S05-USA-03739-01

PATIENT
  Age: 18 Year
  Sex: Female

DRUGS (4)
  1. LEXAPRO [Suspect]
     Indication: COMPLEX PARTIAL SEIZURES
     Dosage: 5 MG QD PO
     Route: 048
     Dates: start: 20050201, end: 20050101
  2. LEXAPRO [Suspect]
     Indication: COMPLEX PARTIAL SEIZURES
     Dosage: 10 MG QD PO
     Route: 048
     Dates: start: 20050101, end: 20050516
  3. LAMICTAL [Concomitant]
  4. DEPAKOTE [Concomitant]

REACTIONS (5)
  - ABNORMAL DREAMS [None]
  - COMPLEX PARTIAL SEIZURES [None]
  - CONDITION AGGRAVATED [None]
  - HALLUCINATION [None]
  - INSOMNIA [None]
